FAERS Safety Report 14681502 (Version 1)
Quarter: 2018Q1

REPORT INFORMATION
  Report Type: Spontaneous
  Country: PL (occurrence: PL)
  Receive Date: 20180326
  Receipt Date: 20180326
  Transmission Date: 20180509
  Serious: Yes (Hospitalization)
  Sender: FDA-Public Use
  Company Number: PL-TEVA-2018-PL-872175

PATIENT
  Age: 59 Year
  Sex: Female

DRUGS (4)
  1. CYCLOSPORIN A [Suspect]
     Active Substance: CYCLOSPORINE
     Indication: DERMATITIS ATOPIC
     Dosage: 2.5 MG/KG/DAY
     Route: 048
     Dates: start: 2010
  2. CYCLOSPORIN A [Suspect]
     Active Substance: CYCLOSPORINE
     Indication: DERMATITIS ATOPIC
     Route: 048
     Dates: start: 2004, end: 2004
  3. CYCLOSPORIN A [Suspect]
     Active Substance: CYCLOSPORINE
     Indication: DERMATITIS ATOPIC
     Route: 048
     Dates: end: 2008
  4. PREDNISONE. [Concomitant]
     Active Substance: PREDNISONE
     Indication: DERMATITIS ATOPIC
     Route: 048

REACTIONS (2)
  - Lymphomatoid papulosis [Recovered/Resolved]
  - Anaplastic large cell lymphoma T- and null-cell types [Recovered/Resolved]
